FAERS Safety Report 4907062-3 (Version None)
Quarter: 2006Q1

REPORT INFORMATION
  Report Type: 
  Country: None (occurrence: None)
  Receive Date: 20060207
  Receipt Date: 20060116
  Transmission Date: 20060701
  Serious: Yes (Hospitalization, Other)
  Sender: FDA-Public Use
  Company Number: US_0508120813

PATIENT
  Age: 48 Year
  Sex: Female
  Weight: 68 kg

DRUGS (19)
  1. OLANZAPINE [Suspect]
     Indication: DEPRESSION
     Dosage: SEE IMAGE
     Route: 048
     Dates: start: 20010315, end: 20010410
  2. OLANZAPINE [Suspect]
     Indication: DEPRESSION
     Dosage: SEE IMAGE
     Route: 048
     Dates: start: 20010410, end: 20021218
  3. OLANZAPINE [Suspect]
     Indication: DEPRESSION
     Dosage: SEE IMAGE
     Route: 048
     Dates: start: 20021218, end: 20030206
  4. REMERON [Concomitant]
  5. NEURONTIN [Concomitant]
  6. PAXIL [Concomitant]
  7. PREVACID [Concomitant]
  8. TRICOR [Concomitant]
  9. VIOXX [Concomitant]
  10. REGLAN [Concomitant]
  11. DARVOCET-N (PROPOXYPHENE NAPSYLATE) CAPSULE [Concomitant]
  12. BIAXIN [Concomitant]
  13. WELLBUTRIN [Concomitant]
  14. PREMPRO [Concomitant]
  15. PRILOSEC [Concomitant]
  16. ULTRACET [Concomitant]
  17. ATARAX [Concomitant]
  18. CIPRO [Concomitant]
  19. DIFLUCAN (FLUCONAZOLE) [Concomitant]

REACTIONS (30)
  - ALANINE AMINOTRANSFERASE INCREASED [None]
  - ASPARTATE AMINOTRANSFERASE INCREASED [None]
  - BLOOD CHOLESTEROL INCREASED [None]
  - BLOOD GLUCOSE INCREASED [None]
  - BLOOD TRIGLYCERIDES INCREASED [None]
  - CARDIOVASCULAR DISORDER [None]
  - CYSTITIS [None]
  - DEHYDRATION [None]
  - DIABETES MELLITUS [None]
  - DIABETES MELLITUS INADEQUATE CONTROL [None]
  - DIABETES MELLITUS NON-INSULIN-DEPENDENT [None]
  - DIABETIC NEUROPATHY [None]
  - DYSFUNCTIONAL UTERINE BLEEDING [None]
  - GLYCOSYLATED HAEMOGLOBIN DECREASED [None]
  - GLYCOSYLATED HAEMOGLOBIN INCREASED [None]
  - HYPERTENSION [None]
  - HYPERTRIGLYCERIDAEMIA [None]
  - LEIOMYOMA [None]
  - LIPASE INCREASED [None]
  - METABOLIC SYNDROME [None]
  - NAUSEA [None]
  - OBESITY [None]
  - PANCREATITIS [None]
  - PERITONEAL ADHESIONS [None]
  - PNEUMONITIS [None]
  - POSTMENOPAUSAL HAEMORRHAGE [None]
  - PRESCRIBED OVERDOSE [None]
  - RESPIRATORY TRACT INFECTION FUNGAL [None]
  - URINARY TRACT INFECTION [None]
  - VOMITING [None]
